FAERS Safety Report 7249221-3 (Version None)
Quarter: 2011Q1

REPORT INFORMATION
  Report Type: 
  Country: None (occurrence: None)
  Receive Date: 20110128
  Receipt Date: 20101122
  Transmission Date: 20110831
  Serious: Yes (Hospitalization, Other)
  Sender: FDA-Public Use
  Company Number: US-BAYER-201031861NA

PATIENT
  Sex: Female
  Weight: 98 kg

DRUGS (13)
  1. LEVAQUIN [Concomitant]
     Indication: ANTIBIOTIC THERAPY
     Dosage: 500 MG, QD
     Route: 048
     Dates: start: 20090523
  2. AUGMENTIN '125' [Concomitant]
     Dosage: UNK
     Route: 048
     Dates: start: 20091001
  3. FEXOFENADINE HCL [Concomitant]
     Indication: HYPERSENSITIVITY
     Dosage: UNK
     Dates: start: 20090729
  4. OCELLA [Suspect]
     Indication: CONTRACEPTION
     Route: 048
     Dates: start: 20080801, end: 20090915
  5. UNCODEABLE ^UNKNOWN MANUFACTURER^ [Concomitant]
     Dosage: UNK
     Route: 048
     Dates: start: 20091031
  6. ADVIL [Concomitant]
     Indication: PRODUCT USED FOR UNKNOWN INDICATION
     Dosage: UNK
     Route: 048
     Dates: start: 20090509
  7. AUGMENTIN '125' [Concomitant]
     Indication: RHINITIS ALLERGIC
     Dosage: UNK
     Route: 048
     Dates: start: 20090729, end: 20090809
  8. OCELLA [Suspect]
     Indication: POLYCYSTIC OVARIES
  9. PROTONIX [Concomitant]
     Indication: GASTROOESOPHAGEAL REFLUX DISEASE
     Dosage: UNK
     Route: 048
  10. OMEPRAZOLE [Concomitant]
     Indication: PRODUCT USED FOR UNKNOWN INDICATION
     Dosage: UNK
     Route: 048
     Dates: start: 20090428
  11. UNCODEABLE ^UNKNOWN MANUFACTURER^ [Concomitant]
     Indication: PAIN
     Dosage: UNK
     Dates: start: 20091031
  12. MULTIVITAMIN PREPARATION + MINERAL SUPPLEMENT [Concomitant]
     Indication: PRODUCT USED FOR UNKNOWN INDICATION
     Dosage: UNK
     Route: 048
     Dates: start: 20090518
  13. TYLENOL PM [DIPHENHYDRAMINE HYDROCHLORIDE,PARACETAMOL] [Concomitant]
     Indication: PRODUCT USED FOR UNKNOWN INDICATION
     Dosage: UNK
     Route: 048
     Dates: start: 20090516

REACTIONS (5)
  - PANCREATITIS [None]
  - CHOLECYSTITIS CHRONIC [None]
  - JAUNDICE CHOLESTATIC [None]
  - GALLBLADDER CHOLESTEROLOSIS [None]
  - CHOLELITHIASIS [None]
